FAERS Safety Report 17318500 (Version 1)
Quarter: 2020Q1

REPORT INFORMATION
  Report Type: Spontaneous
  Country: US (occurrence: US)
  Receive Date: 20200124
  Receipt Date: 20200124
  Transmission Date: 20200409
  Serious: Yes (Death, Hospitalization)
  Sender: FDA-Public Use
  Company Number: US-ASTRAZENECA-2020SE10989

PATIENT
  Age: 87 Year
  Sex: Female

DRUGS (6)
  1. BENZTROPINE. [Suspect]
     Active Substance: BENZTROPINE
     Route: 048
  2. QUETIAPINE. [Suspect]
     Active Substance: QUETIAPINE
     Route: 048
  3. ALPRAZOLAM. [Suspect]
     Active Substance: ALPRAZOLAM
     Route: 048
  4. VITAMIN D [Suspect]
     Active Substance: VITAMIN D NOS
     Route: 048
  5. LEVOTHYROXINE. [Suspect]
     Active Substance: LEVOTHYROXINE
     Route: 048
  6. FAMOTIDINE. [Suspect]
     Active Substance: FAMOTIDINE
     Route: 048

REACTIONS (2)
  - Toxicity to various agents [Fatal]
  - Completed suicide [Fatal]
